FAERS Safety Report 23049397 (Version 2)
Quarter: 2024Q2

REPORT INFORMATION
  Report Type: Report from Study
  Country: CZ (occurrence: CZ)
  Receive Date: 20231010
  Receipt Date: 20240621
  Transmission Date: 20240716
  Serious: No
  Sender: FDA-Public Use
  Company Number: CZ-002147023-NVSC2022CZ258252

PATIENT
  Age: 26 Year
  Sex: Female
  Weight: 65 kg

DRUGS (10)
  1. KESIMPTA [Suspect]
     Active Substance: OFATUMUMAB
     Indication: Relapsing-remitting multiple sclerosis
     Dosage: 20 MG, (1X WEEK FOR 3 WEEKS, THEN ONE WEEK BREAK, THEN ONE WEEKLY DOSE, AFTERWARDS FOLLOWED BY A MON
     Route: 058
     Dates: start: 20220613
  2. KESIMPTA [Suspect]
     Active Substance: OFATUMUMAB
     Dosage: UNK, QMO
     Route: 058
     Dates: start: 20220908, end: 20220914
  3. KESIMPTA [Suspect]
     Active Substance: OFATUMUMAB
     Dosage: 20 MG, (1X WEEK FOR 3 WEEKS, THEN ONE WEEK BREAK, THEN ONE WEEKLY DOSE, AFTERWARDS FOLLOWED BY A MON
     Route: 058
     Dates: start: 20221011, end: 20221107
  4. KESIMPTA [Suspect]
     Active Substance: OFATUMUMAB
     Dosage: 20 MG
     Route: 058
     Dates: start: 20230710
  5. KESIMPTA [Suspect]
     Active Substance: OFATUMUMAB
     Dosage: 20 MG
     Route: 058
  6. KESIMPTA [Suspect]
     Active Substance: OFATUMUMAB
     Dosage: 20 MG
     Route: 058
  7. UTROGESTAN [Concomitant]
     Active Substance: PROGESTERONE
     Indication: Hormone therapy
     Dosage: 200 MG (PATIENT WILL TAKE IT UNTIL THE 12TH WEEK OF PREGNANCY)
     Route: 065
  8. VIGANTOL [Concomitant]
     Indication: Product used for unknown indication
     Dosage: 5 DRP, QD
     Route: 065
  9. MINERALS\VITAMINS [Concomitant]
     Active Substance: MINERALS\VITAMINS
     Indication: Product used for unknown indication
     Dosage: 1 DOSAGE FORM, QD
     Route: 065
  10. MINERALS\VITAMINS [Concomitant]
     Active Substance: MINERALS\VITAMINS
     Indication: Product used for unknown indication
     Dosage: 1 DOSAGE FORM, QD
     Route: 065

REACTIONS (1)
  - Maternal exposure during pregnancy [Unknown]

NARRATIVE: CASE EVENT DATE: 20221008
